FAERS Safety Report 8106842-3 (Version None)
Quarter: 2012Q1

REPORT INFORMATION
  Report Type: 
  Country: None (occurrence: None)
  Receive Date: 20120202
  Receipt Date: 20120125
  Transmission Date: 20120608
  Serious: Yes (Hospitalization)
  Sender: FDA-Public Use
  Company Number: US-ASTELLAS-2011US008585

PATIENT
  Sex: Female
  Weight: 48 kg

DRUGS (1)
  1. PROGRAF [Suspect]
     Indication: LUNG TRANSPLANT
     Dosage: 1 MG, BID
     Route: 048
     Dates: start: 20010801

REACTIONS (4)
  - OFF LABEL USE [None]
  - PULMONARY HAEMORRHAGE [None]
  - DYSPNOEA [None]
  - HEART VALVE INCOMPETENCE [None]
